FAERS Safety Report 20863171 (Version 1)
Quarter: 2022Q2

REPORT INFORMATION
  Report Type: Spontaneous
  Country: US (occurrence: US)
  Receive Date: 20220523
  Receipt Date: 20220523
  Transmission Date: 20220720
  Serious: No
  Sender: FDA-Public Use
  Company Number: US-TEVA-2022-US-2032482

PATIENT
  Sex: Female

DRUGS (1)
  1. ESTRADIOL [Suspect]
     Active Substance: ESTRADIOL
     Route: 065

REACTIONS (6)
  - Device difficult to use [Unknown]
  - Device delivery system issue [Unknown]
  - Abdominal distension [Unknown]
  - Nausea [Unknown]
  - Vulvovaginal pain [Unknown]
  - Wrong technique in product usage process [Unknown]
